FAERS Safety Report 5144855-4 (Version None)
Quarter: 2006Q4

REPORT INFORMATION
  Report Type: 
  Country: None (occurrence: None)
  Receive Date: 20061107
  Receipt Date: 20061030
  Transmission Date: 20070319
  Serious: Yes (Other)
  Sender: FDA-Public Use
  Company Number: US-PURDUE-USA_2006_0025549

PATIENT
  Sex: Male

DRUGS (2)
  1. OXYCONTIN [Suspect]
     Indication: PAIN
     Dosage: 20 MG, BID
  2. OXYCONTIN [Suspect]
     Dosage: 40 MG, TID

REACTIONS (7)
  - BLOOD GLUCOSE FLUCTUATION [None]
  - DRUG DEPENDENCE [None]
  - DRUG WITHDRAWAL SYNDROME [None]
  - INJURY [None]
  - MULTI-ORGAN DISORDER [None]
  - PERSONALITY CHANGE [None]
  - TERMINAL STATE [None]
